FAERS Safety Report 16189479 (Version 1)
Quarter: 2019Q2

REPORT INFORMATION
  Report Type: Spontaneous
  Country: US (occurrence: US)
  Receive Date: 20190308
  Receipt Date: 20190308
  Transmission Date: 20190711
  Serious: Yes (Other)
  Sender: FDA-Public Use
  Company Number: None

PATIENT
  Age: 43 Year
  Sex: Female

DRUGS (1)
  1. METHYLPREDNISOLONE SODIUM 1000 FRESENIUS KABI USA [Suspect]
     Active Substance: METHYLPREDNISOLONE SODIUM SUCCINATE
     Indication: MULTIPLE SCLEROSIS
     Route: 042
     Dates: start: 20190221, end: 20190223

REACTIONS (8)
  - Pain [None]
  - Erythema [None]
  - Arthralgia [None]
  - Generalised oedema [None]
  - Neck pain [None]
  - Headache [None]
  - Dyspnoea exertional [None]
  - Contusion [None]

NARRATIVE: CASE EVENT DATE: 20190223
